FAERS Safety Report 7108956-3 (Version None)
Quarter: 2010Q4

REPORT INFORMATION
  Report Type: 
  Country: None (occurrence: None)
  Receive Date: 20101117
  Receipt Date: 20101106
  Transmission Date: 20110411
  Serious: Yes (Other)
  Sender: FDA-Public Use
  Company Number: US-JNJFOC-20101104332

PATIENT
  Sex: Male
  Weight: 20.41 kg

DRUGS (2)
  1. CHILDREN'S TYLENOL SUSPENSION [Suspect]
     Indication: PYREXIA
     Dosage: 3 MELTAWAYS ONE TIME
     Route: 048
  2. CHILDREN'S TYLENOL SUSPENSION [Suspect]
     Dosage: 1 MELTAWAY AT 16:15
     Route: 048

REACTIONS (2)
  - ABNORMAL BEHAVIOUR [None]
  - HALLUCINATION [None]
